FAERS Safety Report 16564136 (Version 1)
Quarter: 2019Q3

REPORT INFORMATION
  Report Type: Spontaneous
  Country: SK (occurrence: SK)
  Receive Date: 20190712
  Receipt Date: 20190712
  Transmission Date: 20191004
  Serious: Yes (Life-Threatening)
  Sender: FDA-Public Use
  Company Number: SK-ALK-ABELLO A/S-2019AA002481

PATIENT

DRUGS (4)
  1. MOMETASONE [Concomitant]
     Active Substance: MOMETASONE
     Indication: RHINITIS ALLERGIC
     Dosage: 50 MICROGRAM
     Dates: start: 20170421
  2. MONTELUKAST [Concomitant]
     Active Substance: MONTELUKAST SODIUM
     Indication: RHINITIS ALLERGIC
     Dosage: 5 MILLIGRAM
     Route: 048
     Dates: start: 2017
  3. RAGWIZAX (302 AMBROSIA ARTEMISIIFOLIA) [Suspect]
     Active Substance: AMBROSIA ARTEMISIIFOLIA POLLEN
     Indication: SEASONAL ALLERGY
     Dosage: 1 TBL
     Dates: start: 20190531, end: 20190610
  4. ALLERGODIL                         /00884001/ [Concomitant]
     Indication: CONJUNCTIVITIS
     Dosage: UNK
     Dates: start: 2017

REACTIONS (9)
  - Pharyngeal swelling [Unknown]
  - Swelling face [Unknown]
  - Rhinorrhoea [Unknown]
  - Nausea [Unknown]
  - Eye irritation [Unknown]
  - Dizziness [Unknown]
  - Palpitations [Unknown]
  - Pruritus [Unknown]
  - Swollen tongue [Unknown]

NARRATIVE: CASE EVENT DATE: 20190531
